FAERS Safety Report 18916144 (Version 1)
Quarter: 2021Q1

REPORT INFORMATION
  Report Type: Spontaneous
  Country: US (occurrence: US)
  Receive Date: 20210219
  Receipt Date: 20210219
  Transmission Date: 20210420
  Serious: No
  Sender: FDA-Public Use
  Company Number: None

PATIENT
  Age: 38 Year
  Sex: Female

DRUGS (3)
  1. BUPRENORPHINE?NALOXONE [Suspect]
     Active Substance: BUPRENORPHINE HYDROCHLORIDE\NALOXONE HYDROCHLORIDE
     Indication: DRUG DEPENDENCE
     Route: 048
     Dates: start: 20190304, end: 20190401
  2. BUPRENORPHINE NALOXONE 8?2MG TABLETS [Concomitant]
     Active Substance: BUPRENORPHINE HYDROCHLORIDE\NALOXONE HYDROCHLORIDE
     Dates: start: 20190304, end: 20190401
  3. BRAND SUBOXONE 8?2MG FILMS [Concomitant]
     Dates: start: 20190420, end: 20210219

REACTIONS (8)
  - Product solubility abnormal [None]
  - Restlessness [None]
  - Withdrawal syndrome [None]
  - Poor quality sleep [None]
  - Irritability [None]
  - Drug dependence [None]
  - Wrong technique in product usage process [None]
  - Product substitution issue [None]

NARRATIVE: CASE EVENT DATE: 20190401
